FAERS Safety Report 12399325 (Version 1)
Quarter: 2016Q2

REPORT INFORMATION
  Report Type: Spontaneous
  Country: US (occurrence: US)
  Receive Date: 20160524
  Receipt Date: 20160524
  Transmission Date: 20160815
  Serious: No
  Sender: FDA-Public Use
  Company Number: US-PERNIX THERAPEUTICS-2016PT000014

PATIENT

DRUGS (5)
  1. SAW PALMETTO                       /00833501/ [Concomitant]
     Active Substance: SAW PALMETTO
     Indication: PROSTATE INFECTION
     Dosage: 550 MG, UNK
     Route: 048
     Dates: start: 2010
  2. MORPHINE SULFATE. [Concomitant]
     Active Substance: MORPHINE SULFATE
     Indication: PAIN
     Dosage: 15 MG, 4 TIMES DAILY
     Route: 048
     Dates: start: 2010
  3. OXYCODONE [Concomitant]
     Active Substance: OXYCODONE
     Indication: PAIN
     Dosage: 15 MG, 4 TIMES DAILY
     Route: 048
     Dates: start: 2010
  4. BABY ASPIRIN [Concomitant]
     Active Substance: ASPIRIN
     Indication: PROPHYLAXIS
     Dosage: 81 MG, 4 TIMES DAILY
     Route: 048
     Dates: start: 1996
  5. HYDROCODONE [Suspect]
     Active Substance: HYDROCODONE
     Indication: PAIN
     Dosage: 10 MG, SEVERAL TIMES DAILY
     Route: 048
     Dates: end: 2006

REACTIONS (1)
  - Abdominal discomfort [Unknown]
